FAERS Safety Report 17186579 (Version 1)
Quarter: 2019Q4

REPORT INFORMATION
  Report Type: Spontaneous
  Country: CA (occurrence: CA)
  Receive Date: 20191220
  Receipt Date: 20191220
  Transmission Date: 20200122
  Serious: Yes (Death, Other)
  Sender: FDA-Public Use
  Company Number: CA-ASTRAZENECA-2019SF82913

PATIENT
  Age: 79 Year
  Sex: Female
  Weight: 72.1 kg

DRUGS (1)
  1. CRESTOR [Suspect]
     Active Substance: ROSUVASTATIN CALCIUM
     Indication: DYSLIPIDAEMIA
     Route: 048

REACTIONS (4)
  - Headache [Unknown]
  - Blood pressure increased [Unknown]
  - Dizziness [Unknown]
  - Asthenia [Fatal]
